FAERS Safety Report 9827219 (Version 2)
Quarter: 2014Q4

REPORT INFORMATION
  Report Type: Spontaneous
  Country: US (occurrence: US)
  Receive Date: 20140117
  Receipt Date: 20141205
  Transmission Date: 20150529
  Serious: No
  Sender: FDA-Public Use
  Company Number: US-BRISTOL-MYERS SQUIBB COMPANY-19527126

PATIENT
  Age: 69 Year
  Sex: Female
  Weight: 49.89 kg

DRUGS (3)
  1. YERVOY [Suspect]
     Active Substance: IPILIMUMAB
     Indication: MALIGNANT MELANOMA
     Dosage: TOTAL DOSE: 147MG?LAST DOSE ON: 03DEC13.
     Route: 042
     Dates: start: 20131001
  2. PROCHLORPERAZINE. [Concomitant]
     Active Substance: PROCHLORPERAZINE
  3. LORAZEPAM. [Concomitant]
     Active Substance: LORAZEPAM

REACTIONS (5)
  - Diarrhoea [Recovering/Resolving]
  - Nausea [Unknown]
  - Pyrexia [Recovering/Resolving]
  - Fatigue [Recovering/Resolving]
  - Rash [Recovering/Resolving]

NARRATIVE: CASE EVENT DATE: 201310
